FAERS Safety Report 5375568-1 (Version None)
Quarter: 2007Q2

REPORT INFORMATION
  Report Type: 
  Country: None (occurrence: None)
  Receive Date: 20070629
  Receipt Date: 20070618
  Transmission Date: 20071010
  Serious: Yes (Other)
  Sender: FDA-Public Use
  Company Number: FR-PFIZER INC-2007051417

PATIENT
  Age: 65 Year
  Sex: Female

DRUGS (4)
  1. SALAZOPYRINE [Suspect]
     Indication: RHEUMATOID ARTHRITIS
     Dosage: DAILY DOSE:2GRAM-TEXT:EVERY DAY
  2. ALDACTONE [Suspect]
     Indication: HYPERTENSION
  3. GLICLAZIDE [Concomitant]
  4. INSULIN [Concomitant]

REACTIONS (4)
  - NEUROPATHY PERIPHERAL [None]
  - OEDEMA PERIPHERAL [None]
  - PARAESTHESIA [None]
  - VASCULAR CALCIFICATION [None]
